FAERS Safety Report 16791971 (Version 1)
Quarter: 2019Q3

REPORT INFORMATION
  Report Type: Spontaneous
  Country: JP (occurrence: JP)
  Receive Date: 20190910
  Receipt Date: 20190910
  Transmission Date: 20191005
  Serious: Yes (Death)
  Sender: FDA-Public Use
  Company Number: JP-BAYER-2019-163256

PATIENT
  Age: 76 Year
  Sex: Female
  Weight: 42 kg

DRUGS (13)
  1. MIYA-BM [Concomitant]
     Active Substance: CLOSTRIDIUM BUTYRICUM SPORES STRAIN M-55
  2. ADEMPAS [Suspect]
     Active Substance: RIOCIGUAT
     Indication: PULMONARY HYPERTENSION
     Dosage: 0.5 MG, BID
     Route: 048
     Dates: start: 20190213, end: 20190214
  3. SELARA [Concomitant]
     Active Substance: EPLERENONE
     Dosage: 25MG
  4. ELIQUIS [Concomitant]
     Active Substance: APIXABAN
     Dosage: 5MG
  5. ESOMEPRAZOLE. [Concomitant]
     Active Substance: ESOMEPRAZOLE MAGNESIUM
     Dosage: 20MG
  6. ALLOPURINOL. [Concomitant]
     Active Substance: ALLOPURINOL
     Dosage: 50MG
  7. THYRADIN S [Concomitant]
     Active Substance: LEVOTHYROXINE SODIUM
     Dosage: 25 MCG
  8. FUROSEMIDE. [Concomitant]
     Active Substance: FUROSEMIDE
     Dosage: 20MG
  9. BISOPROLOL FUMARATE. [Concomitant]
     Active Substance: BISOPROLOL FUMARATE
     Dosage: 2.5MG
  10. NEO-MERCAZOLE [Concomitant]
     Active Substance: CARBIMAZOLE
     Dosage: 5MG
  11. FEBURIC [Concomitant]
     Active Substance: FEBUXOSTAT
     Dosage: UNK
     Dates: start: 20190313
  12. ADEMPAS [Suspect]
     Active Substance: RIOCIGUAT
     Indication: PULMONARY HYPERTENSION
     Dosage: 0.5 MG, BID
     Route: 048
     Dates: start: 20190313, end: 20190405
  13. ADEMPAS [Suspect]
     Active Substance: RIOCIGUAT
     Indication: PULMONARY HYPERTENSION
     Dosage: 1 MG, BID
     Route: 048
     Dates: start: 20190215, end: 20190312

REACTIONS (6)
  - Cardiac failure [Fatal]
  - Pulmonary hypertension [Fatal]
  - Inappropriate schedule of product administration [None]
  - Dyspnoea [Fatal]
  - Respiratory disorder [Fatal]
  - Therapeutic product effect increased [None]

NARRATIVE: CASE EVENT DATE: 20190313
